FAERS Safety Report 23434132 (Version 4)
Quarter: 2024Q1

REPORT INFORMATION
  Report Type: Report from Study
  Country: ES (occurrence: ES)
  Receive Date: 20240123
  Receipt Date: 20240229
  Transmission Date: 20240410
  Serious: Yes (Other)
  Sender: FDA-Public Use
  Company Number: ES-SA-SAC20231102000156

PATIENT
  Age: 63 Year
  Sex: Female
  Weight: 77.9 kg

DRUGS (7)
  1. METFORMIN [Suspect]
     Active Substance: METFORMIN HYDROCHLORIDE
     Indication: Type 2 diabetes mellitus
     Dosage: UNK
     Route: 048
  2. INSULIN GLARGINE [Suspect]
     Active Substance: INSULIN GLARGINE
     Indication: Type 2 diabetes mellitus
     Dosage: 40 INTERNATIONAL UNIT, QD
     Route: 058
  3. INSULIN GLARGINE [Suspect]
     Active Substance: INSULIN GLARGINE
     Dosage: 37 INTERNATIONAL UNIT, QD
     Route: 058
     Dates: start: 202208
  4. INSULIN GLARGINE [Suspect]
     Active Substance: INSULIN GLARGINE
     Dosage: UNK
     Route: 058
     Dates: start: 202401
  5. INSULIN GLARGINE [Suspect]
     Active Substance: INSULIN GLARGINE
     Dosage: 22 INTERNATIONAL UNIT, QD
     Route: 058
     Dates: start: 202401
  6. APIDRA [Suspect]
     Active Substance: INSULIN GLULISINE
     Indication: Type 2 diabetes mellitus
     Dosage: UNK, Q8H (TID)
     Route: 058
  7. APIDRA [Suspect]
     Active Substance: INSULIN GLULISINE
     Dosage: 18 INTERNATIONAL UNIT
     Route: 058

REACTIONS (16)
  - Diabetes mellitus inadequate control [Not Recovered/Not Resolved]
  - Peripheral swelling [Recovering/Resolving]
  - Heart rate increased [Recovering/Resolving]
  - Tooth loss [Unknown]
  - Anxiety [Recovering/Resolving]
  - Oxygen saturation decreased [Recovering/Resolving]
  - Gait disturbance [Not Recovered/Not Resolved]
  - Fluid retention [Recovering/Resolving]
  - Depression [Not Recovered/Not Resolved]
  - Diarrhoea [Recovered/Resolved]
  - Fear of injection [Unknown]
  - Product storage error [Unknown]
  - Nausea [Recovered/Resolved]
  - Vomiting [Recovered/Resolved]
  - Hypoglycaemia [Recovered/Resolved]
  - Malaise [Recovered/Resolved]

NARRATIVE: CASE EVENT DATE: 20231001
